FAERS Safety Report 10528627 (Version 1)
Quarter: 2014Q4

REPORT INFORMATION
  Report Type: Spontaneous
  Country: US (occurrence: None)
  Receive Date: 20141017
  Receipt Date: 20141017
  Transmission Date: 20150528
  Serious: No
  Sender: FDA-Public Use
  Company Number: None

PATIENT
  Age: 56 Year
  Sex: Female
  Weight: 102.06 kg

DRUGS (2)
  1. CYCLOBENZAPRINE [Suspect]
     Active Substance: CYCLOBENZAPRINE
     Indication: PAIN IN EXTREMITY
     Dosage: 1 PILL
     Route: 048
     Dates: start: 20141010, end: 20141011
  2. CYCLOBENZAPRINE [Suspect]
     Active Substance: CYCLOBENZAPRINE
     Indication: SCIATICA
     Dosage: 1 PILL
     Route: 048
     Dates: start: 20141010, end: 20141011

REACTIONS (3)
  - Paraesthesia [None]
  - Hypoaesthesia [None]
  - Burning sensation [None]

NARRATIVE: CASE EVENT DATE: 20141010
